FAERS Safety Report 12368489 (Version 4)
Quarter: 2019Q3

REPORT INFORMATION
  Report Type: Spontaneous
  Country: US (occurrence: US)
  Receive Date: 20160513
  Receipt Date: 20190923
  Transmission Date: 20191004
  Serious: No
  Sender: FDA-Public Use
  Company Number: US-PFIZER INC-2016247035

PATIENT
  Sex: Female

DRUGS (1)
  1. XALKORI [Suspect]
     Active Substance: CRIZOTINIB
     Indication: NON-SMALL CELL LUNG CANCER
     Dosage: UNK
     Dates: start: 2014

REACTIONS (5)
  - Diarrhoea [Unknown]
  - Nausea [Unknown]
  - Cognitive disorder [Unknown]
  - Joint swelling [Unknown]
  - Stomatitis [Unknown]
